FAERS Safety Report 6393563-0 (Version None)
Quarter: 2009Q4

REPORT INFORMATION
  Report Type: 
  Country: None (occurrence: None)
  Receive Date: 20091008
  Receipt Date: 20091001
  Transmission Date: 20100525
  Serious: Yes (Death)
  Sender: FDA-Public Use
  Company Number: NO-GENENTECH-290784

PATIENT
  Age: 60 Year
  Sex: Female

DRUGS (2)
  1. MABTHERA [Suspect]
     Indication: ANTISYNTHETASE SYNDROME
     Dosage: 1000 MG, UNK
     Route: 065
  2. PREDNISOLONE [Suspect]
     Indication: ANTISYNTHETASE SYNDROME
     Route: 048

REACTIONS (2)
  - MYOSITIS [None]
  - PNEUMOCYSTIS JIROVECI INFECTION [None]
